FAERS Safety Report 10200936 (Version 2)
Quarter: 2014Q3

REPORT INFORMATION
  Report Type: Spontaneous
  Country: US (occurrence: US)
  Receive Date: 20140528
  Receipt Date: 20140704
  Transmission Date: 20150326
  Serious: Yes (Hospitalization)
  Sender: FDA-Public Use
  Company Number: US-JNJFOC-20140509553

PATIENT
  Age: 50 Year
  Sex: Female
  Weight: 49.9 kg

DRUGS (7)
  1. OXYCONTIN [Concomitant]
     Active Substance: OXYCODONE HYDROCHLORIDE
     Indication: PAIN
     Route: 048
     Dates: start: 20120901
  2. METHYLPHENIDATE [Suspect]
     Active Substance: METHYLPHENIDATE
     Indication: DISTURBANCE IN ATTENTION
     Route: 048
  3. FLEXERIL [Concomitant]
     Active Substance: CYCLOBENZAPRINE HYDROCHLORIDE
     Indication: MUSCLE RELAXANT THERAPY
     Route: 048
     Dates: start: 201209
  4. CONCERTA [Suspect]
     Active Substance: METHYLPHENIDATE HYDROCHLORIDE
     Indication: MEMORY IMPAIRMENT
     Route: 048
     Dates: start: 201301
  5. OXYCODONE [Concomitant]
     Active Substance: OXYCODONE
     Indication: PAIN
     Route: 048
     Dates: start: 201209
  6. CONCERTA [Suspect]
     Active Substance: METHYLPHENIDATE HYDROCHLORIDE
     Indication: DISTURBANCE IN ATTENTION
     Route: 048
     Dates: start: 201301
  7. METHYLPHENIDATE [Suspect]
     Active Substance: METHYLPHENIDATE
     Indication: MEMORY IMPAIRMENT
     Route: 048

REACTIONS (16)
  - Coma [Not Recovered/Not Resolved]
  - Surgery [Unknown]
  - Clavicle fracture [Recovered/Resolved]
  - Vision blurred [Not Recovered/Not Resolved]
  - Investigation [Unknown]
  - Weight increased [Not Recovered/Not Resolved]
  - Drug dose omission [Not Recovered/Not Resolved]
  - Road traffic accident [Recovered/Resolved]
  - Laceration [Unknown]
  - Sternal fracture [Recovered/Resolved]
  - Memory impairment [Not Recovered/Not Resolved]
  - Limb crushing injury [Recovered/Resolved]
  - Head injury [Not Recovered/Not Resolved]
  - Wrist fracture [Recovered/Resolved]
  - Vocal cord paralysis [Not Recovered/Not Resolved]
  - Pneumothorax traumatic [Not Recovered/Not Resolved]

NARRATIVE: CASE EVENT DATE: 20120901
